FAERS Safety Report 9276989 (Version 1)
Quarter: 2013Q2

REPORT INFORMATION
  Report Type: Spontaneous
  Country: US (occurrence: None)
  Receive Date: 20130501
  Receipt Date: 20130501
  Transmission Date: 20140414
  Serious: Yes (Other)
  Sender: FDA-Public Use
  Company Number: 2013P1005057

PATIENT
  Age: 25 Year
  Sex: Female
  Weight: 54.43 kg

DRUGS (3)
  1. REGLAN [Suspect]
     Indication: MOTION SICKNESS
     Route: 030
     Dates: start: 20121213, end: 20121213
  2. BENADRYL [Suspect]
     Indication: MOTION SICKNESS
     Route: 030
     Dates: start: 20121213, end: 20121213
  3. REGLAN [Suspect]
     Indication: MOTION SICKNESS
     Route: 048

REACTIONS (15)
  - Suicidal ideation [None]
  - Anxiety [None]
  - Panic attack [None]
  - Palpitations [None]
  - Swollen tongue [None]
  - Hyperhidrosis [None]
  - Lacrimation increased [None]
  - Restlessness [None]
  - Muscle twitching [None]
  - Tremor [None]
  - Feeling abnormal [None]
  - Heart rate increased [None]
  - Confusional state [None]
  - Depression [None]
  - Hypersensitivity [None]
